FAERS Safety Report 23154143 (Version 1)
Quarter: 2023Q4

REPORT INFORMATION
  Report Type: Spontaneous
  Country: RO (occurrence: RO)
  Receive Date: 20231107
  Receipt Date: 20231107
  Transmission Date: 20240110
  Serious: Yes (Hospitalization)
  Sender: FDA-Public Use
  Company Number: RO-MYLANLABS-2023M1116364

PATIENT
  Age: 17 Year
  Sex: Male

DRUGS (17)
  1. ENOXAPARIN [Suspect]
     Active Substance: ENOXAPARIN
     Indication: Penile vascular disorder
     Dosage: 4000 IU INTERNATIONAL UNIT(S), QD
     Route: 058
  2. ENOXAPARIN [Suspect]
     Active Substance: ENOXAPARIN
     Indication: Ischaemia
  3. NITROGLYCERIN [Suspect]
     Active Substance: NITROGLYCERIN
     Indication: Penile vascular disorder
     Dosage: 25 MILLIGRAM
     Route: 061
  4. NITROGLYCERIN [Suspect]
     Active Substance: NITROGLYCERIN
     Indication: Ischaemia
  5. NITROGLYCERIN [Suspect]
     Active Substance: NITROGLYCERIN
     Indication: Penile vascular disorder
     Dosage: UNK, OINTMENT
     Route: 061
  6. NITROGLYCERIN [Suspect]
     Active Substance: NITROGLYCERIN
     Indication: Ischaemia
  7. ALPROSTADIL [Suspect]
     Active Substance: ALPROSTADIL
     Indication: Penile vascular disorder
     Dosage: 20 MILLIGRAM, BID
     Route: 065
  8. ALPROSTADIL [Suspect]
     Active Substance: ALPROSTADIL
     Indication: Ischaemia
  9. ROPIVACAINE [Suspect]
     Active Substance: ROPIVACAINE
     Indication: Penile vascular disorder
     Dosage: UNK (INFUSION)
     Route: 008
  10. PENTOXIFYLLINE [Suspect]
     Active Substance: PENTOXIFYLLINE
     Indication: Penile vascular disorder
     Dosage: UNK, (10 MG/KG, 100 MG) THREE TIMES A DAY
     Route: 042
  11. PENTOXIFYLLINE [Suspect]
     Active Substance: PENTOXIFYLLINE
     Indication: Ischaemia
  12. AMOXICILLIN [Concomitant]
     Active Substance: AMOXICILLIN
     Indication: Prophylaxis urinary tract infection
     Dosage: 30 MILLIGRAM/KILOGRAM
     Route: 065
  13. SALINE [Concomitant]
     Active Substance: SODIUM CHLORIDE
     Indication: Penile vascular disorder
     Dosage: UNK, SALINE SOLUTION AND EPINEPHRINE (1/10.000 DILUTION)
     Route: 065
  14. SALINE [Concomitant]
     Active Substance: SODIUM CHLORIDE
     Indication: Ischaemia
  15. EPINEPHRINE [Concomitant]
     Active Substance: EPINEPHRINE
     Indication: Penile vascular disorder
     Dosage: UNK, SALINE SOLUTION AND EPINEPHRINE (1/10.000 DILUTION)
     Route: 065
  16. EPINEPHRINE [Concomitant]
     Active Substance: EPINEPHRINE
     Indication: Ischaemia
  17. AMOXICILLIN\CLAVULANIC ACID [Concomitant]
     Active Substance: AMOXICILLIN\CLAVULANIC ACID
     Indication: Prophylaxis urinary tract infection
     Dosage: UNK, AMOXICILLIN 30 MG/KG
     Route: 065

REACTIONS (2)
  - Drug ineffective for unapproved indication [Unknown]
  - Off label use [Unknown]
